FAERS Safety Report 4805420-9 (Version None)
Quarter: 2005Q4

REPORT INFORMATION
  Report Type: 
  Country: None (occurrence: None)
  Receive Date: 20051018
  Receipt Date: 20051011
  Transmission Date: 20060501
  Serious: Yes (Death)
  Sender: FDA-Public Use
  Company Number: T05-ESP-02760-01

PATIENT
  Age: 83 Year
  Sex: Female

DRUGS (5)
  1. MEMANTINE HCL [Suspect]
     Indication: DEMENTIA ALZHEIMER'S TYPE
  2. DIURETICS [Concomitant]
  3. ANTIDEPRESSANTS [Concomitant]
  4. ANXIOLYTICS [Concomitant]
  5. RIVASTIGMINE [Concomitant]

REACTIONS (1)
  - DEATH [None]
